FAERS Safety Report 10213016 (Version 1)
Quarter: 2014Q2

REPORT INFORMATION
  Report Type: Spontaneous
  Country: US (occurrence: US)
  Receive Date: 20140603
  Receipt Date: 20140603
  Transmission Date: 20141212
  Serious: Yes (Death)
  Sender: FDA-Public Use
  Company Number: US-AMGEN INC.-USASP2014040489

PATIENT
  Age: 64 Year
  Sex: Male

DRUGS (1)
  1. PROCRIT [Suspect]
     Indication: PRODUCT USED FOR UNKNOWN INDICATION
     Dosage: 40,0001ML (4), UNK, UNK
     Route: 065

REACTIONS (1)
  - Death [Fatal]
